FAERS Safety Report 24225013 (Version 2)
Quarter: 2024Q3

REPORT INFORMATION
  Report Type: Report from Study
  Country: US (occurrence: US)
  Receive Date: 20240820
  Receipt Date: 20240826
  Transmission Date: 20241016
  Serious: No
  Sender: ABBVIE
  Company Number: US-ABBVIE-5883622

PATIENT
  Age: 74 Year
  Sex: Female
  Weight: 107.5 kg

DRUGS (8)
  1. RISANKIZUMAB [Suspect]
     Active Substance: RISANKIZUMAB
     Indication: Psoriasis
     Dosage: FORM STRENGTH: 150 MILLIGRAM
     Route: 058
     Dates: start: 20230629
  2. LIDOCAINE [Concomitant]
     Active Substance: LIDOCAINE
     Indication: Pain
  3. LOSARTAN [Concomitant]
     Active Substance: LOSARTAN\LOSARTAN POTASSIUM
     Indication: Hypertension
  4. ISOSORBIDE MONONITRATE [Concomitant]
     Active Substance: ISOSORBIDE MONONITRATE
     Indication: Cardiac disorder
  5. CLOBETASOL [Concomitant]
     Active Substance: CLOBETASOL
     Indication: Lichen sclerosus
  6. METOPROLOL [Concomitant]
     Active Substance: METOPROLOL
     Indication: Hypertension
  7. HUMALOG [Concomitant]
     Active Substance: INSULIN LISPRO
     Indication: Diabetes mellitus
  8. LEVOTHYROXINE [Concomitant]
     Active Substance: LEVOTHYROXINE\LEVOTHYROXINE SODIUM
     Indication: Hypothyroidism

REACTIONS (7)
  - Gastrointestinal disorder [Unknown]
  - Hot flush [Recovered/Resolved]
  - Neck pain [Recovering/Resolving]
  - Urinary tract infection [Not Recovered/Not Resolved]
  - Vitamin D abnormal [Unknown]
  - Pain in extremity [Recovering/Resolving]
  - Blood glucose increased [Recovered/Resolved]

NARRATIVE: CASE EVENT DATE: 20240201
